FAERS Safety Report 21423414 (Version 1)
Quarter: 2022Q4

REPORT INFORMATION
  Report Type: Spontaneous
  Country: US (occurrence: None)
  Receive Date: 20221006
  Receipt Date: 20221006
  Transmission Date: 20230112
  Serious: Yes (Other)
  Sender: FDA-Public Use
  Company Number: None

PATIENT
  Age: 42 Year
  Sex: Female

DRUGS (1)
  1. ADBRY [Suspect]
     Active Substance: TRALOKINUMAB-LDRM
     Indication: Dermatitis atopic
     Dosage: 150/1 MG/ML EVERY OTHER DAY  SUBCUTANEOUSLY? ?
     Route: 058
     Dates: start: 20220803

REACTIONS (4)
  - Dry skin [None]
  - Pruritus [None]
  - Contusion [None]
  - Von Willebrand^s disease [None]

NARRATIVE: CASE EVENT DATE: 20221002
